FAERS Safety Report 7726863-X (Version None)
Quarter: 2011Q3

REPORT INFORMATION
  Report Type: 
  Country: None (occurrence: None)
  Receive Date: 20110902
  Receipt Date: 20110831
  Transmission Date: 20111222
  Serious: Yes (Other)
  Sender: FDA-Public Use
  Company Number: AU-ABBOTT-11P-008-0850267-00

PATIENT
  Sex: Male

DRUGS (1)
  1. HUMIRA [Suspect]
     Indication: PSORIASIS
     Dosage: 40 FORTNIGHTLY
     Dates: start: 20100802

REACTIONS (3)
  - HEPATIC LESION [None]
  - HEPATITIS C [None]
  - LIVER FUNCTION TEST ABNORMAL [None]
